FAERS Safety Report 23134270 (Version 1)
Quarter: 2023Q4

REPORT INFORMATION
  Report Type: Spontaneous
  Country: None (occurrence: US)
  Receive Date: 20231101
  Receipt Date: 20231101
  Transmission Date: 20240110
  Serious: Yes (Other)
  Sender: FDA-Public Use
  Company Number: US-Ricola USA Inc.-2147676

PATIENT
  Age: 14 Year

DRUGS (1)
  1. RICOLA MAX THROAT CARE HONEY LEMON [Suspect]
     Active Substance: MENTHOL
     Indication: Hypersensitivity
     Route: 048
     Dates: start: 20231021, end: 20231021

REACTIONS (1)
  - Hypersensitivity [Recovered/Resolved]

NARRATIVE: CASE EVENT DATE: 20231021
